FAERS Safety Report 15533544 (Version 3)
Quarter: 2019Q1

REPORT INFORMATION
  Report Type: Spontaneous
  Country: GB (occurrence: GB)
  Receive Date: 20181019
  Receipt Date: 20190116
  Transmission Date: 20190417
  Serious: Yes (Other)
  Sender: FDA-Public Use
  Company Number: GB-MYLANLABS-2018M1078369

PATIENT
  Age: 61 Year
  Sex: Female

DRUGS (1)
  1. LEVOFLOXACIN. [Suspect]
     Active Substance: LEVOFLOXACIN
     Indication: INFECTION
     Dosage: UNK
     Route: 065
     Dates: start: 2014

REACTIONS (6)
  - Fatigue [Unknown]
  - Tendon pain [Unknown]
  - Pain in extremity [Unknown]
  - Toxicity to various agents [Unknown]
  - Pain [Unknown]
  - Depression [Unknown]
